FAERS Safety Report 18010131 (Version 1)
Quarter: 2020Q3

REPORT INFORMATION
  Report Type: Spontaneous
  Country: US (occurrence: US)
  Receive Date: 20200710
  Receipt Date: 20200710
  Transmission Date: 20201103
  Serious: No
  Sender: FDA-Public Use
  Company Number: US-ELI_LILLY_AND_COMPANY-US202006006265

PATIENT
  Age: 13 Year
  Sex: Male

DRUGS (1)
  1. BAQSIMI [Suspect]
     Active Substance: GLUCAGON
     Indication: TYPE 1 DIABETES MELLITUS
     Dosage: UNK, UNKNOWN
     Route: 045

REACTIONS (8)
  - Lacrimation increased [Unknown]
  - Swelling face [Unknown]
  - Hypersensitivity [Unknown]
  - Exophthalmos [Unknown]
  - Pain [Unknown]
  - Headache [Unknown]
  - Erythema [Unknown]
  - Burning sensation [Unknown]
